FAERS Safety Report 4522147-1 (Version None)
Quarter: 2004Q4

REPORT INFORMATION
  Report Type: 
  Country: None (occurrence: None)
  Receive Date: 20041207
  Receipt Date: 20041122
  Transmission Date: 20050328
  Serious: Yes (Other)
  Sender: FDA-Public Use
  Company Number: USA041184405

PATIENT
  Age: 62 Year
  Sex: Male

DRUGS (6)
  1. CIALIS [Suspect]
     Indication: ERECTILE DYSFUNCTION
     Dosage: 20 MG
     Dates: start: 20040101
  2. LIPITOR [Concomitant]
  3. SALAGEN [Concomitant]
  4. ALLOPURINOL [Concomitant]
  5. GLUCOTROL XL [Concomitant]
  6. MULTI-VITAMIN [Concomitant]

REACTIONS (2)
  - BREAST CANCER MALE [None]
  - METASTASES TO LYMPH NODES [None]
